FAERS Safety Report 22053675 (Version 2)
Quarter: 2023Q1

REPORT INFORMATION
  Report Type: Spontaneous
  Country: JP (occurrence: JP)
  Receive Date: 20230302
  Receipt Date: 20230331
  Transmission Date: 20230418
  Serious: Yes (Life-Threatening, Hospitalization, Other)
  Sender: FDA-Public Use
  Company Number: JP-GSKJP-JP2022JPN162659AA

PATIENT

DRUGS (16)
  1. DAPRODUSTAT [Suspect]
     Active Substance: DAPRODUSTAT
     Indication: Nephrogenic anaemia
     Dosage: 2 MG
     Route: 048
     Dates: start: 20220615, end: 20220715
  2. LEVOTHYROXINE SODIUM [Concomitant]
     Active Substance: LEVOTHYROXINE SODIUM
     Indication: Hypothyroidism
     Dosage: 50 ?G, QD
     Route: 048
     Dates: start: 20191008, end: 20220801
  3. LEVOTHYROXINE SODIUM [Concomitant]
     Active Substance: LEVOTHYROXINE SODIUM
     Dosage: 75 ?G, QD
     Route: 048
     Dates: start: 20220802, end: 20220829
  4. LEVOTHYROXINE SODIUM [Concomitant]
     Active Substance: LEVOTHYROXINE SODIUM
     Dosage: 100 ?G, QD
     Route: 048
     Dates: start: 20220830
  5. TOPILORIC TABLETS [Concomitant]
     Indication: Hyperuricaemia
     Dosage: 20 MG, QD
     Route: 048
     Dates: start: 20220615
  6. ILUAMIX COMBINATION TABLETS [Concomitant]
     Indication: Hypertension
     Dosage: 1 DF, QD
     Route: 048
     Dates: start: 20220615
  7. LULLAN TABLETS [Concomitant]
     Indication: Schizophrenia
     Dosage: 4 MG, QD
     Route: 048
     Dates: start: 20210921
  8. NEXIUM [Concomitant]
     Active Substance: ESOMEPRAZOLE MAGNESIUM
     Indication: Gastrooesophageal reflux disease
     Dosage: 10 MG, QD
     Route: 048
     Dates: start: 20220224
  9. HEPARINOID CREAM [Concomitant]
     Indication: Asteatosis
     Dosage: 1.7 G, QD
     Route: 003
     Dates: start: 20190520
  10. MAINTATE (BISOPROLOL FUMARATE) [Concomitant]
     Indication: Cardiac failure
     Dosage: 0.625 MG, QD
     Route: 048
     Dates: start: 20200128, end: 20220518
  11. HYDROCHLOROTHIAZIDE\VALSARTAN [Concomitant]
     Active Substance: HYDROCHLOROTHIAZIDE\VALSARTAN
     Indication: Hypertension
     Dosage: 1 DF, QD
     Route: 048
     Dates: start: 20220224, end: 20220615
  12. CADUET [Concomitant]
     Active Substance: AMLODIPINE BESYLATE\ATORVASTATIN CALCIUM
     Indication: Hypertension
     Dosage: 1 DF, QD
     Route: 048
     Dates: start: 20220420, end: 20220615
  13. CADUET [Concomitant]
     Active Substance: AMLODIPINE BESYLATE\ATORVASTATIN CALCIUM
     Indication: Hypercholesterolaemia
  14. LIPITOR TABLETS [Concomitant]
     Indication: Hypercholesterolaemia
     Dosage: 5 MG, QD
     Route: 048
     Dates: start: 20210310, end: 20220420
  15. CADUET NO.2 [Concomitant]
     Indication: Hypertension
     Dosage: 1 DF, QD
     Route: 048
     Dates: start: 20190708, end: 20210210
  16. CADUET NO.2 [Concomitant]
     Indication: Hypercholesterolaemia

REACTIONS (5)
  - Embolism venous [Recovering/Resolving]
  - Oedema peripheral [Unknown]
  - Skin discolouration [Unknown]
  - Decreased appetite [Unknown]
  - Myalgia [Recovered/Resolved]

NARRATIVE: CASE EVENT DATE: 20220101
